FAERS Safety Report 11512725 (Version 1)
Quarter: 2015Q3

REPORT INFORMATION
  Report Type: Spontaneous
  Country: US (occurrence: US)
  Receive Date: 20150903
  Receipt Date: 20150903
  Transmission Date: 20151125
  Serious: No
  Sender: FDA-Public Use
  Company Number: US-ELI_LILLY_AND_COMPANY-US201003006081

PATIENT
  Sex: Female

DRUGS (3)
  1. HUMALOG [Suspect]
     Active Substance: INSULIN LISPRO
     Dosage: 2 U, AS NEEDED
  2. LANTUS [Concomitant]
     Active Substance: INSULIN GLARGINE
  3. BYETTA [Concomitant]
     Active Substance: EXENATIDE
     Dosage: UNK, 2/D

REACTIONS (2)
  - Malabsorption from injection site [Unknown]
  - Blood glucose increased [Unknown]
